FAERS Safety Report 25714066 (Version 2)
Quarter: 2025Q3

REPORT INFORMATION
  Report Type: Spontaneous
  Country: EU (occurrence: EU)
  Receive Date: 20250822
  Receipt Date: 20250902
  Transmission Date: 20251021
  Serious: Yes (Hospitalization, Other)
  Sender: SANDOZ
  Company Number: EU-002147023-NVSC2023ES153642

PATIENT
  Age: 38 Year
  Sex: Male
  Weight: 77 kg

DRUGS (6)
  1. MYCOPHENOLATE MOFETIL [Suspect]
     Active Substance: MYCOPHENOLATE MOFETIL
     Indication: Prophylaxis against transplant rejection
     Route: 065
  2. RITUXIMAB [Suspect]
     Active Substance: RITUXIMAB
     Indication: Prophylaxis against transplant rejection
     Route: 065
  3. TACROLIMUS [Suspect]
     Active Substance: TACROLIMUS
     Indication: Prophylaxis against transplant rejection
     Route: 065
  4. LAPINE T-LYMPHOCYTE IMMUNE GLOBULIN [Suspect]
     Active Substance: LAPINE T-LYMPHOCYTE IMMUNE GLOBULIN
     Indication: Prophylaxis against transplant rejection
     Route: 065
  5. HYDRALAZINE [Concomitant]
     Active Substance: HYDRALAZINE HYDROCHLORIDE
     Indication: Product used for unknown indication
     Dosage: 25 MG, Q8H (IF BLOOD PRESSURE MORE THAN 140/90 MMHG)
     Route: 065
     Dates: start: 20220919
  6. HYDRALAZINE [Concomitant]
     Active Substance: HYDRALAZINE HYDROCHLORIDE
     Dosage: 50 MG, Q8H (IF BLOOD PRESSURE MORE THAN 140/90 MMHG)
     Route: 065
     Dates: end: 202306

REACTIONS (12)
  - Pericardial effusion [Unknown]
  - Oedema [Unknown]
  - Pleural effusion [Unknown]
  - Renal failure [Recovering/Resolving]
  - C3 glomerulopathy [Unknown]
  - Pyrexia [Unknown]
  - COVID-19 [Unknown]
  - Oedema peripheral [Unknown]
  - Monoclonal immunoglobulin increased [Not Recovered/Not Resolved]
  - Accidental overdose [Unknown]
  - Product use issue [Unknown]
  - Medication error [Unknown]

NARRATIVE: CASE EVENT DATE: 20220901
